FAERS Safety Report 22836840 (Version 6)
Quarter: 2024Q3

REPORT INFORMATION
  Report Type: Spontaneous
  Country: US (occurrence: US)
  Receive Date: 20230818
  Receipt Date: 20240924
  Transmission Date: 20241016
  Serious: Yes (Other)
  Sender: SANOFI AVENTIS
  Company Number: US-SA-SAC20230817000914

PATIENT
  Age: 17 Year
  Sex: Male

DRUGS (6)
  1. ELOCTATE [Suspect]
     Active Substance: EFMOROCTOCOG ALFA
     Dosage: 2480 U  (+/- 10%)
     Route: 042
  2. ELOCTATE [Suspect]
     Active Substance: EFMOROCTOCOG ALFA
     Dosage: 2480 U  (+/- 10%)
     Route: 042
  3. ELOCTATE [Suspect]
     Active Substance: EFMOROCTOCOG ALFA
     Dosage: 2540 U (+/-10%), PRN EVERY 12 HOURS  FOR BLEEDING OR PROCEDURES
     Route: 065
  4. ELOCTATE [Suspect]
     Active Substance: EFMOROCTOCOG ALFA
     Dosage: 2540 U (+/-10%), PRN EVERY 12 HOURS  FOR BLEEDING OR PROCEDURES
     Route: 065
  5. ELOCTATE [Suspect]
     Active Substance: EFMOROCTOCOG ALFA
     Dosage: 2405 U (+/-10%), PRN EVERY 12 HOURS  FOR BLEEDING OR PROCEDURES
     Route: 065
  6. ELOCTATE [Suspect]
     Active Substance: EFMOROCTOCOG ALFA
     Dosage: 2405 U (+/-10%), PRN EVERY 12 HOURS  FOR BLEEDING OR PROCEDURES
     Route: 065

REACTIONS (8)
  - Muscle haemorrhage [Not Recovered/Not Resolved]
  - Haemorrhage [Unknown]
  - Peripheral swelling [Unknown]
  - Pain in extremity [Recovered/Resolved]
  - Limb injury [Recovered/Resolved]
  - Haemorrhage [Not Recovered/Not Resolved]
  - Inflammation [Not Recovered/Not Resolved]
  - Back pain [Not Recovered/Not Resolved]

NARRATIVE: CASE EVENT DATE: 20230808
